FAERS Safety Report 9688282 (Version 4)
Quarter: 2014Q1

REPORT INFORMATION
  Report Type: Spontaneous
  Country: JP (occurrence: JP)
  Receive Date: 20131114
  Receipt Date: 20140324
  Transmission Date: 20141002
  Serious: Yes (Other)
  Sender: FDA-Public Use
  Company Number: JP-PFIZER INC-2013322060

PATIENT
  Age: 51 Year
  Sex: Male

DRUGS (7)
  1. CAMPTO [Suspect]
     Indication: COLON CANCER
     Dosage: UNK, ONCE A DAY
     Route: 041
     Dates: start: 201110
  2. ELPLAT [Suspect]
     Indication: COLON CANCER
     Dosage: UNK, ONCE A DAY
     Route: 041
     Dates: start: 201009
  3. LEVOFOLINATE [Suspect]
     Indication: COLON CANCER
     Dosage: UNK, ONCE A DAY
     Route: 041
     Dates: start: 201110
  4. XELODA [Concomitant]
     Dosage: DAILY
     Dates: start: 201009
  5. AVASTIN [Concomitant]
     Dosage: TOTAL 12 CYCLES
     Dates: start: 201009
  6. 5-FU [Concomitant]
     Dosage: UNK
     Route: 040
     Dates: start: 201110
  7. VECTIBIX [Concomitant]
     Dosage: TOTAL 5 CYCLES
     Dates: start: 201202

REACTIONS (5)
  - Anorectal varices [Recovered/Resolved]
  - Neutrophil count decreased [Unknown]
  - Splenomegaly [Unknown]
  - Nausea [Unknown]
  - Vomiting [Unknown]
